FAERS Safety Report 6135730-7 (Version None)
Quarter: 2009Q1

REPORT INFORMATION
  Report Type: 
  Country: None (occurrence: None)
  Receive Date: 20090327
  Receipt Date: 20090318
  Transmission Date: 20090719
  Serious: Yes (Hospitalization)
  Sender: FDA-Public Use
  Company Number: US-ABBOTT-09P-163-0560379-00

PATIENT
  Sex: Female
  Weight: 72.6 kg

DRUGS (4)
  1. HUMIRA [Suspect]
     Indication: PSORIASIS
     Route: 058
     Dates: start: 20060213, end: 20090211
  2. LIPITOR [Concomitant]
     Indication: HYPERCHOLESTEROLAEMIA
     Dates: start: 20080829
  3. VENTOLIN [Concomitant]
     Indication: ASTHMA
     Dates: start: 19850101
  4. ISONIAZID [Concomitant]
     Indication: LATENT TUBERCULOSIS
     Dates: start: 20051017, end: 20060605

REACTIONS (1)
  - CEREBRAL HAEMORRHAGE [None]
